FAERS Safety Report 14766480 (Version 5)
Quarter: 2018Q2

REPORT INFORMATION
  Report Type: Spontaneous
  Country: US (occurrence: US)
  Receive Date: 20180416
  Receipt Date: 20180502
  Transmission Date: 20180711
  Serious: No
  Sender: FDA-Public Use
  Company Number: US-BIOGEN-2018BI00552427

PATIENT
  Age: 31 Year
  Sex: Female

DRUGS (1)
  1. TYSABRI [Suspect]
     Active Substance: NATALIZUMAB
     Indication: MULTIPLE SCLEROSIS
     Dosage: INFUSED OVER 1 HOUR
     Route: 042
     Dates: start: 20180329

REACTIONS (13)
  - Cognitive disorder [Unknown]
  - Nuclear magnetic resonance imaging abnormal [Unknown]
  - Diplopia [Unknown]
  - Arthralgia [Recovered/Resolved]
  - Influenza like illness [Not Recovered/Not Resolved]
  - Hypoaesthesia [Not Recovered/Not Resolved]
  - Chest pain [Not Recovered/Not Resolved]
  - Vision blurred [Recovered/Resolved]
  - Stress [Recovered/Resolved]
  - Emotional disorder [Unknown]
  - Chest discomfort [Recovered/Resolved]
  - Pain in extremity [Unknown]
  - Genital pain [Unknown]

NARRATIVE: CASE EVENT DATE: 20180329
